FAERS Safety Report 16994861 (Version 1)
Quarter: 2019Q4

REPORT INFORMATION
  Report Type: Spontaneous
  Country: DE (occurrence: DE)
  Receive Date: 20191105
  Receipt Date: 20191105
  Transmission Date: 20200122
  Serious: Yes (Other)
  Sender: FDA-Public Use
  Company Number: DE-JNJFOC-20191045187

PATIENT
  Age: 50 Year
  Sex: Female

DRUGS (1)
  1. REGAINE WOMEN 5% FOAM [Suspect]
     Active Substance: MINOXIDIL
     Indication: SELF-MEDICATION
     Dosage: 1G ONCE A DAY
     Route: 061

REACTIONS (2)
  - Hypertension [Recovered/Resolved]
  - Heart rate increased [Recovered/Resolved]

NARRATIVE: CASE EVENT DATE: 20191018
